FAERS Safety Report 5980725-7 (Version None)
Quarter: 2008Q4

REPORT INFORMATION
  Report Type: 
  Country: None (occurrence: None)
  Receive Date: 20081205
  Receipt Date: 20080326
  Transmission Date: 20090506
  Serious: No
  Sender: FDA-Public Use
  Company Number: A0717157A

PATIENT
  Age: 27 Year
  Sex: Male

DRUGS (1)
  1. COMMIT [Suspect]
     Indication: DRUG USE FOR UNKNOWN INDICATION
     Dates: start: 20080322, end: 20080322

REACTIONS (3)
  - DYSPHAGIA [None]
  - LOCAL SWELLING [None]
  - RASH [None]
